FAERS Safety Report 7756569-2 (Version None)
Quarter: 2011Q3

REPORT INFORMATION
  Report Type: 
  Country: None (occurrence: None)
  Receive Date: 20110916
  Receipt Date: 20110908
  Transmission Date: 20111222
  Serious: Yes (Other)
  Sender: FDA-Public Use
  Company Number: US-JNJFOC-20110904267

PATIENT
  Sex: Female

DRUGS (4)
  1. COLAZAL [Concomitant]
     Route: 065
  2. REMICADE [Suspect]
     Indication: COLITIS ULCERATIVE
     Route: 042
     Dates: start: 20101001
  3. VITAMIN D [Concomitant]
     Route: 065
  4. PROBIOTIC [Concomitant]
     Route: 065

REACTIONS (1)
  - MEMORY IMPAIRMENT [None]
